FAERS Safety Report 7825581-7 (Version None)
Quarter: 2011Q4

REPORT INFORMATION
  Report Type: 
  Country: None (occurrence: None)
  Receive Date: 20111019
  Receipt Date: 20111011
  Transmission Date: 20120403
  Serious: Yes (Other)
  Sender: FDA-Public Use
  Company Number: US-ALLERGAN-1113420US

PATIENT
  Age: 47 Year
  Sex: Female
  Weight: 62.585 kg

DRUGS (1)
  1. BOTULINUM TOXIN TYPE A [Suspect]
     Indication: MIGRAINE
     Dosage: 31 INJECTIONS ONLY
     Route: 030
     Dates: start: 20101208, end: 20101208

REACTIONS (6)
  - MUSCULAR WEAKNESS [None]
  - DEPRESSION [None]
  - FACIAL PARESIS [None]
  - MUSCULOSKELETAL PAIN [None]
  - NECK PAIN [None]
  - HEADACHE [None]
